FAERS Safety Report 4475789-6 (Version None)
Quarter: 2004Q4

REPORT INFORMATION
  Report Type: 
  Country: None (occurrence: None)
  Receive Date: 20041015
  Receipt Date: 20040824
  Transmission Date: 20050328
  Serious: Yes (Hospitalization)
  Sender: FDA-Public Use
  Company Number: AU-GLAXOSMITHKLINE-B0344204A

PATIENT
  Age: 37 Year
  Sex: Male
  Weight: 86 kg

DRUGS (6)
  1. ZYBAN [Suspect]
     Dosage: 1TAB TWICE PER DAY
     Route: 048
     Dates: start: 20040803, end: 20040811
  2. VALIUM [Suspect]
  3. WARFARIN SODIUM [Suspect]
  4. TRITACE [Suspect]
  5. ACETAMINOPHEN W/ CODEINE [Suspect]
  6. PARACETAMOL [Concomitant]

REACTIONS (9)
  - ADVERSE EVENT [None]
  - AGGRESSION [None]
  - AGITATION [None]
  - AMNESIA [None]
  - HOSTILITY [None]
  - IRRITABILITY [None]
  - MENTAL DISORDER [None]
  - OVERDOSE [None]
  - SUICIDE ATTEMPT [None]
